FAERS Safety Report 4838116-8 (Version None)
Quarter: 2005Q4

REPORT INFORMATION
  Report Type: 
  Country: None (occurrence: None)
  Receive Date: 20051128
  Receipt Date: 20051114
  Transmission Date: 20060501
  Serious: Yes (Hospitalization)
  Sender: FDA-Public Use
  Company Number: 2005CG01882

PATIENT
  Age: 69 Year
  Sex: Male

DRUGS (6)
  1. NEXIUM [Suspect]
     Indication: OESOPHAGITIS
     Route: 048
  2. SELOKEN [Suspect]
     Indication: ESSENTIAL HYPERTENSION
     Route: 048
  3. PLAVIX [Suspect]
     Indication: ACUTE MYOCARDIAL INFARCTION
     Route: 048
     Dates: end: 20050210
  4. AMAREL [Suspect]
     Indication: DIABETES MELLITUS NON-INSULIN-DEPENDENT
     Route: 048
     Dates: end: 20050210
  5. LOXEN [Suspect]
     Indication: ESSENTIAL HYPERTENSION
     Route: 048
  6. NITRODERM [Suspect]
     Indication: ACUTE MYOCARDIAL INFARCTION
     Route: 062

REACTIONS (7)
  - DUODENITIS [None]
  - FUNGAL INFECTION [None]
  - GASTROINTESTINAL HAEMORRHAGE [None]
  - GASTROOESOPHAGEAL REFLUX DISEASE [None]
  - HAEMATEMESIS [None]
  - NORMOCHROMIC NORMOCYTIC ANAEMIA [None]
  - OESOPHAGITIS [None]
